FAERS Safety Report 16681206 (Version 1)
Quarter: 2019Q3

REPORT INFORMATION
  Report Type: Spontaneous
  Country: US (occurrence: US)
  Receive Date: 20190808
  Receipt Date: 20190808
  Transmission Date: 20191004
  Serious: Yes (Life-Threatening, Hospitalization, Other)
  Sender: FDA-Public Use
  Company Number: US-AUROBINDO-AUR-APL-2019-044752

PATIENT

DRUGS (1)
  1. CLOZAPINE. [Suspect]
     Active Substance: CLOZAPINE
     Indication: SCHIZOPHRENIA
     Dosage: 40 MILLIGRAM, DAILY (PAST SEVERAL YEARS)
     Route: 065

REACTIONS (6)
  - Choreoathetosis [Recovering/Resolving]
  - Withdrawal syndrome [Recovered/Resolved]
  - Tardive dyskinesia [Recovering/Resolving]
  - Catatonia [Recovered/Resolved]
  - Urinary incontinence [Recovered/Resolved]
  - Tonic clonic movements [Recovered/Resolved]
